FAERS Safety Report 19917505 (Version 1)
Quarter: 2021Q4

REPORT INFORMATION
  Report Type: Spontaneous
  Country: DE (occurrence: DE)
  Receive Date: 20211005
  Receipt Date: 20211005
  Transmission Date: 20220303
  Serious: Yes (Other)
  Sender: FDA-Public Use
  Company Number: DE-EMA-DD-20210917-KUMARVN_P-102002

PATIENT
  Age: 33 Year
  Sex: Male

DRUGS (7)
  1. MORPHINE [Interacting]
     Active Substance: MORPHINE
     Indication: Product used for unknown indication
     Dosage: UNK
     Route: 065
  2. ALPHA-PYRROLIDINOHEPTAPHENONE [Suspect]
     Active Substance: ALPHA-PYRROLIDINOHEPTAPHENONE
     Indication: Product used for unknown indication
     Dosage: UNK
     Route: 065
  3. .ALPHA.-PYRROLIDINOVALEROTHIOPHENONE [Suspect]
     Active Substance: .ALPHA.-PYRROLIDINOVALEROTHIOPHENONE
     Indication: Product used for unknown indication
     Dosage: UNK
     Route: 065
  4. CODEINE [Interacting]
     Active Substance: CODEINE
     Indication: Product used for unknown indication
     Dosage: UNK
     Route: 065
  5. LORAZEPAM [Interacting]
     Active Substance: LORAZEPAM
     Indication: Product used for unknown indication
     Dosage: UNK
     Route: 065
  6. DRONABINOL [Suspect]
     Active Substance: DRONABINOL
     Indication: Product used for unknown indication
     Dosage: UNK
     Route: 065
  7. ETORICOXIB [Concomitant]
     Active Substance: ETORICOXIB
     Indication: Product used for unknown indication
     Route: 065

REACTIONS (11)
  - Irritability [Unknown]
  - Drug abuse [Unknown]
  - Mental disorder [Unknown]
  - Mood swings [Unknown]
  - Psychotic behaviour [Unknown]
  - Personality change [Unknown]
  - Drug interaction [Unknown]
  - Thinking abnormal [Unknown]
  - Drug dependence [Unknown]
  - Memory impairment [Unknown]
  - Aggression [Unknown]
